FAERS Safety Report 15492465 (Version 2)
Quarter: 2018Q4

REPORT INFORMATION
  Report Type: Spontaneous
  Country: US (occurrence: US)
  Receive Date: 20181012
  Receipt Date: 20181108
  Transmission Date: 20190205
  Serious: No
  Sender: FDA-Public Use
  Company Number: US-PFIZER INC-2018410743

PATIENT
  Age: 61 Year
  Sex: Male
  Weight: 92.99 kg

DRUGS (5)
  1. TRAMADOL HCL [Concomitant]
     Active Substance: TRAMADOL HYDROCHLORIDE
     Indication: ARTHRITIS
  2. VERAPAMIL HCL [Concomitant]
     Active Substance: VERAPAMIL HYDROCHLORIDE
     Indication: BLOOD PRESSURE ABNORMAL
     Dosage: 120 MG, 2X/DAY (TWO PILLS TWICE A DAY, SO A TOTAL OF FOUR PILLS)
     Route: 048
     Dates: start: 20181002
  3. METHYLPREDNISOLONE. [Concomitant]
     Active Substance: METHYLPREDNISOLONE
     Indication: ARTHRITIS
     Dosage: 4 MG, UNK
     Route: 048
  4. EUCRISA [Suspect]
     Active Substance: CRISABOROLE
     Indication: PSORIASIS
     Dosage: UNK (60 GM TUBE OF EUCRISA TO TRY 04 HRS)
     Dates: start: 20181002
  5. TRAMADOL HCL [Concomitant]
     Active Substance: TRAMADOL HYDROCHLORIDE
     Indication: PAIN
     Dosage: UNK UNK, 3X/DAY [50 MG, TABLET, TAKE 2 OR 3 TABLET]
     Route: 048
     Dates: start: 20181002

REACTIONS (1)
  - Drug effective for unapproved indication [Unknown]

NARRATIVE: CASE EVENT DATE: 20181002
